FAERS Safety Report 12708998 (Version 1)
Quarter: 2016Q3

REPORT INFORMATION
  Report Type: Spontaneous
  Country: US (occurrence: US)
  Receive Date: 20160901
  Receipt Date: 20160901
  Transmission Date: 20161109
  Serious: No
  Sender: FDA-Public Use
  Company Number: US-JAZZ-2016-US-008504

PATIENT
  Sex: Female

DRUGS (41)
  1. XYREM [Suspect]
     Active Substance: SODIUM OXYBATE
     Dosage: 3.75 G, BID
     Route: 048
     Dates: start: 201512, end: 201602
  2. ORTHO TRI CYCLEN LO [Concomitant]
     Active Substance: ETHINYL ESTRADIOL\NORGESTIMATE
  3. LEXAPRO [Concomitant]
     Active Substance: ESCITALOPRAM OXALATE
  4. LO LOESTRIN FE [Concomitant]
     Active Substance: ETHINYL ESTRADIOL\NORETHINDRONE ACETATE
  5. TUMS EX [Concomitant]
     Active Substance: CALCIUM CARBONATE
  6. MULTI VITAMIN + MINERAL [Concomitant]
     Active Substance: MINERALS\VITAMINS
  7. ASCORBIC ACID. [Concomitant]
     Active Substance: ASCORBIC ACID
  8. PROBIOTIC [Concomitant]
     Active Substance: PROBIOTICS NOS
  9. VALTREX [Concomitant]
     Active Substance: VALACYCLOVIR HYDROCHLORIDE
  10. PROZAC [Concomitant]
     Active Substance: FLUOXETINE HYDROCHLORIDE
  11. AZELASTINE [Concomitant]
     Active Substance: AZELASTINE
  12. XYREM [Suspect]
     Active Substance: SODIUM OXYBATE
     Indication: NARCOLEPSY
     Dosage: 2.25 G, BID
     Route: 048
     Dates: start: 201011, end: 2010
  13. XANAX XR [Concomitant]
     Active Substance: ALPRAZOLAM
  14. METFORMIN HCL [Concomitant]
     Active Substance: METFORMIN HYDROCHLORIDE
  15. OMEPRAZOLE DR [Concomitant]
     Active Substance: OMEPRAZOLE
  16. TRIAMCINOLONE [Concomitant]
     Active Substance: TRIAMCINOLONE
  17. PEPCID [Concomitant]
     Active Substance: FAMOTIDINE
  18. ALLEGRA [Concomitant]
     Active Substance: FEXOFENADINE HYDROCHLORIDE
  19. MOTRIN IB [Concomitant]
     Active Substance: IBUPROFEN
  20. GLUCOSAMINE CHONDROITIN [Concomitant]
     Active Substance: CHONDROITIN SULFATE (BOVINE)\GLUCOSAMINE HYDROCHLORIDE
  21. NORGESTIMATE AND ETHINYL ESTRADIOL [Concomitant]
     Active Substance: ETHINYL ESTRADIOL\NORGESTIMATE
  22. ZINC GLUCONATE [Concomitant]
     Active Substance: ZINC GLUCONATE
  23. VITAMIN C ER [Concomitant]
  24. PATANOL [Concomitant]
     Active Substance: OLOPATADINE HYDROCHLORIDE
  25. KLONOPIN [Concomitant]
     Active Substance: CLONAZEPAM
  26. XYREM [Suspect]
     Active Substance: SODIUM OXYBATE
     Dosage: 2.25 G, BID
     Route: 048
     Dates: start: 201511, end: 201512
  27. VITAMIN D [Concomitant]
     Active Substance: CHOLECALCIFEROL
  28. CYMBALTA [Concomitant]
     Active Substance: DULOXETINE HYDROCHLORIDE
  29. GINKGO BILOBA [Concomitant]
     Active Substance: GINKGO
  30. MULTIVITAMINS [Concomitant]
     Active Substance: VITAMINS
  31. XYREM [Suspect]
     Active Substance: SODIUM OXYBATE
     Dosage: 3.5 G, BID
     Route: 048
     Dates: start: 201602
  32. ZYRTEC [Concomitant]
     Active Substance: CETIRIZINE HYDROCHLORIDE
  33. XYREM [Suspect]
     Active Substance: SODIUM OXYBATE
     Indication: CATAPLEXY
     Dosage: 2.25 G, BID
     Route: 048
     Dates: start: 201411, end: 2014
  34. LYRICA [Concomitant]
     Active Substance: PREGABALIN
     Dosage: UNK
  35. FERROUS SULFATE EC [Concomitant]
  36. ADDERALL [Concomitant]
     Active Substance: AMPHETAMINE ASPARTATE\AMPHETAMINE SULFATE\DEXTROAMPHETAMINE SACCHARATE\DEXTROAMPHETAMINE SULFATE
  37. CRANBERRY. [Concomitant]
     Active Substance: CRANBERRY
  38. ADDERALL XR [Concomitant]
     Active Substance: AMPHETAMINE ASPARTATE\AMPHETAMINE SULFATE\DEXTROAMPHETAMINE SACCHARATE\DEXTROAMPHETAMINE SULFATE
  39. WELLBUTRIN SR [Concomitant]
     Active Substance: BUPROPION HYDROCHLORIDE
  40. GABAPENTIN. [Concomitant]
     Active Substance: GABAPENTIN
  41. KELP [Concomitant]
     Active Substance: KELP

REACTIONS (3)
  - Polycystic ovaries [Not Recovered/Not Resolved]
  - Bacterial vaginosis [Unknown]
  - Fibromyalgia [Not Recovered/Not Resolved]
